FAERS Safety Report 7938168-2 (Version None)
Quarter: 2011Q4

REPORT INFORMATION
  Report Type: 
  Country: None (occurrence: None)
  Receive Date: 20111123
  Receipt Date: 20111011
  Transmission Date: 20120403
  Serious: No
  Sender: FDA-Public Use
  Company Number: US-BRISTOL-MYERS SQUIBB COMPANY-16153462

PATIENT
  Age: 36 Year
  Sex: Female

DRUGS (1)
  1. ONGLYZA [Suspect]
     Indication: TYPE 2 DIABETES MELLITUS
     Dosage: ONLGYZA 2.5 MG AND 3 MONTHS LATER INCREASE DOSE TO 5MG

REACTIONS (1)
  - DRUG EFFECT DECREASED [None]
